FAERS Safety Report 4478448-9 (Version None)
Quarter: 2004Q4

REPORT INFORMATION
  Report Type: 
  Country: None (occurrence: None)
  Receive Date: 20041018
  Receipt Date: 20041018
  Transmission Date: 20050328
  Serious: Yes (Hospitalization)
  Sender: FDA-Public Use
  Company Number: None

PATIENT
  Age: 65 Year
  Sex: Male
  Weight: 97.6 kg

DRUGS (12)
  1. WARFARIN  5 MG [Suspect]
     Indication: ATRIAL FIBRILLATION
     Dosage: 5 MG QD ORAL
     Route: 048
  2. WARFARIN  5 MG [Suspect]
     Indication: CARDIAC FAILURE CONGESTIVE
     Dosage: 5 MG QD ORAL
     Route: 048
  3. ACETAMINOPHEN [Concomitant]
  4. ALLOPURINOL [Concomitant]
  5. ASPIRIN [Concomitant]
  6. FOSINOPRIL SODIUM [Concomitant]
  7. HYDROCHLOROTHIAZIDE [Concomitant]
  8. LORATADINE [Concomitant]
  9. METHIMAZOLE [Concomitant]
  10. OMEPRAZOLE [Concomitant]
  11. PRAZOSIN HCL [Concomitant]
  12. PROPRANOLOL [Concomitant]

REACTIONS (4)
  - DRUG INTERACTION [None]
  - EPISTAXIS [None]
  - HAEMOPTYSIS [None]
  - INTERNATIONAL NORMALISED RATIO INCREASED [None]
